FAERS Safety Report 8575573-8 (Version None)
Quarter: 2012Q3

REPORT INFORMATION
  Report Type: 
  Country: None (occurrence: None)
  Receive Date: 20120807
  Receipt Date: 20120730
  Transmission Date: 20120928
  Serious: Yes (Other)
  Sender: FDA-Public Use
  Company Number: US-US-EMD SERONO, INC.-7101981

PATIENT
  Sex: Female

DRUGS (3)
  1. REBIF [Suspect]
     Indication: MULTIPLE SCLEROSIS
     Route: 058
     Dates: start: 20110908, end: 20120501
  2. REBIF [Suspect]
     Route: 058
     Dates: start: 20120726
  3. PERCOGESIC [Concomitant]
     Indication: PREMEDICATION

REACTIONS (5)
  - TOOTH ABSCESS [None]
  - INFLUENZA [None]
  - FATIGUE [None]
  - BAND SENSATION [None]
  - SQUAMOUS CELL CARCINOMA OF SKIN [None]
